FAERS Safety Report 12408479 (Version 1)
Quarter: 2016Q2

REPORT INFORMATION
  Report Type: Report from Study
  Country: US (occurrence: US)
  Receive Date: 20160526
  Receipt Date: 20160526
  Transmission Date: 20160815
  Serious: Yes (Hospitalization)
  Sender: FDA-Public Use
  Company Number: GXBR2015US001746

PATIENT
  Age: 10 Year
  Sex: Male
  Weight: 27.94 kg

DRUGS (1)
  1. SOMATROPIN [Suspect]
     Active Substance: SOMATROPIN
     Indication: GROWTH HORMONE DEFICIENCY
     Dosage: 1.8 MG, QD
     Route: 065
     Dates: start: 20111006

REACTIONS (1)
  - Mastoiditis [Recovering/Resolving]

NARRATIVE: CASE EVENT DATE: 20150715
